FAERS Safety Report 11472838 (Version 2)
Quarter: 2015Q3

REPORT INFORMATION
  Report Type: Report from Study
  Country: US (occurrence: US)
  Receive Date: 20150908
  Receipt Date: 20150922
  Transmission Date: 20151125
  Serious: Yes (Other)
  Sender: FDA-Public Use
  Company Number: US-GILEAD-2015-0170731

PATIENT
  Age: 57 Year
  Sex: Female

DRUGS (3)
  1. ADCIRCA [Concomitant]
     Active Substance: TADALAFIL
  2. AMBRISENTAN [Suspect]
     Active Substance: AMBRISENTAN
     Indication: PRODUCT USED FOR UNKNOWN INDICATION
     Dosage: 10 MG, QD
     Route: 065
     Dates: start: 20150128
  3. REMODULIN [Concomitant]
     Active Substance: TREPROSTINIL

REACTIONS (8)
  - Infusion site warmth [Unknown]
  - Ascites [Unknown]
  - Infusion site pain [Unknown]
  - Oedema peripheral [Unknown]
  - Infusion site erythema [Unknown]
  - Fatigue [Unknown]
  - Headache [Unknown]
  - Dyspnoea [Unknown]
